FAERS Safety Report 23922699 (Version 1)
Quarter: 2024Q2

REPORT INFORMATION
  Report Type: Spontaneous
  Country: US (occurrence: US)
  Receive Date: 20240531
  Receipt Date: 20240531
  Transmission Date: 20240716
  Serious: Yes (Other)
  Sender: FDA-Public Use
  Company Number: US-AMGEN-USASP2024101856

PATIENT
  Age: 45 Year
  Sex: Female

DRUGS (4)
  1. RITUXIMAB [Suspect]
     Active Substance: RITUXIMAB
     Indication: Ulcerative keratitis
     Dosage: UNK
     Route: 065
     Dates: start: 202105
  2. DAPSONE [Concomitant]
     Active Substance: DAPSONE
     Dosage: UNK
     Dates: start: 202104
  3. DAPSONE [Concomitant]
     Active Substance: DAPSONE
     Dosage: 25 MILLIGRAM, BID
     Route: 048
     Dates: start: 202105
  4. Immunoglobulin [Concomitant]
     Dosage: UNK
     Dates: start: 202105

REACTIONS (8)
  - Linear IgA disease [Unknown]
  - Pancytopenia [Recovering/Resolving]
  - Off label use [Unknown]
  - Ulcer haemorrhage [Unknown]
  - Mucosal haemorrhage [Unknown]
  - Spontaneous haemorrhage [Unknown]
  - Agitation [Unknown]
  - Gastroenteritis [Recovering/Resolving]

NARRATIVE: CASE EVENT DATE: 20210101
